FAERS Safety Report 16279255 (Version 3)
Quarter: 2019Q2

REPORT INFORMATION
  Report Type: Spontaneous
  Country: US (occurrence: US)
  Receive Date: 20190506
  Receipt Date: 20190517
  Transmission Date: 20190711
  Serious: Yes (Hospitalization, Other)
  Sender: FDA-Public Use
  Company Number: US-UNITED THERAPEUTICS-UNT-2019-007889

PATIENT
  Age: 70 Year
  Sex: Female
  Weight: 105.21 kg

DRUGS (1)
  1. REMODULIN [Suspect]
     Active Substance: TREPROSTINIL
     Indication: PULMONARY ARTERIAL HYPERTENSION
     Dosage: 0.05 ?G/KG, CONTINUING
     Route: 041
     Dates: start: 20130131

REACTIONS (3)
  - Sepsis [Unknown]
  - Blood potassium decreased [Unknown]
  - Shock [Unknown]

NARRATIVE: CASE EVENT DATE: 20190430
